FAERS Safety Report 18906800 (Version 2)
Quarter: 2021Q1

REPORT INFORMATION
  Report Type: Spontaneous
  Country: US (occurrence: US)
  Receive Date: 20210217
  Receipt Date: 20210303
  Transmission Date: 20210420
  Serious: Yes (Other)
  Sender: FDA-Public Use
  Company Number: US-GILEAD-2021-0517570

PATIENT
  Age: 70 Year
  Sex: Female
  Weight: 63.1 kg

DRUGS (18)
  1. REMDESIVIR. [Suspect]
     Active Substance: REMDESIVIR
     Indication: COVID-19
     Dosage: 200 MG, ONCE
     Route: 042
     Dates: start: 20210125, end: 20210125
  2. ATORVASTATIN [Concomitant]
     Active Substance: ATORVASTATIN
  3. GUAIFENESIN. [Concomitant]
     Active Substance: GUAIFENESIN
  4. REMDESIVIR. [Suspect]
     Active Substance: REMDESIVIR
     Dosage: 100 MG, QD
     Route: 042
     Dates: start: 20210126, end: 20210129
  5. ENOXAPARIN [Concomitant]
     Active Substance: ENOXAPARIN
  6. CEFTRIAXONE. [Concomitant]
     Active Substance: CEFTRIAXONE
  7. ASCORBIC ACID. [Concomitant]
     Active Substance: ASCORBIC ACID
  8. IPRATROPIUM BROMIDE AND ALBUTEROL SULFATE [Concomitant]
     Active Substance: ALBUTEROL SULFATE\IPRATROPIUM BROMIDE
  9. ACETAMINOPHEN. [Concomitant]
     Active Substance: ACETAMINOPHEN
  10. DEXAMETHASONE. [Concomitant]
     Active Substance: DEXAMETHASONE
  11. AZITHROMYCIN ANHYDROUS. [Concomitant]
     Active Substance: AZITHROMYCIN ANHYDROUS
  12. ACETAMINOFEN [Concomitant]
     Active Substance: ACETAMINOPHEN
  13. MAGNESIUM [Concomitant]
     Active Substance: MAGNESIUM
  14. ZINC. [Concomitant]
     Active Substance: ZINC
  15. PANTOPRAZOLE [Concomitant]
     Active Substance: PANTOPRAZOLE
  16. LOVENOX HP [Concomitant]
     Active Substance: ENOXAPARIN SODIUM
  17. CHOLECALCIFEROL [Concomitant]
     Active Substance: CHOLECALCIFEROL
  18. ONDANSETRON [Concomitant]
     Active Substance: ONDANSETRON

REACTIONS (2)
  - Aspartate aminotransferase increased [Recovered/Resolved]
  - Alanine aminotransferase increased [Recovered/Resolved]

NARRATIVE: CASE EVENT DATE: 20210129
